FAERS Safety Report 5080347-9 (Version None)
Quarter: 2006Q3

REPORT INFORMATION
  Report Type: 
  Country: None (occurrence: None)
  Receive Date: 20060814
  Receipt Date: 20060814
  Transmission Date: 20061208
  Serious: Yes (Life-Threatening, Hospitalization, Disabling)
  Sender: FDA-Public Use
  Company Number: None

PATIENT
  Age: 45 Year
  Sex: Female
  Weight: 77.1115 kg

DRUGS (2)
  1. ZOLOFT [Suspect]
     Indication: DEPRESSION
     Dosage: 2 TABS PER DAY PO
     Route: 048
     Dates: start: 20020901, end: 20050815
  2. ZOLOFT [Concomitant]

REACTIONS (1)
  - SUICIDE ATTEMPT [None]
